FAERS Safety Report 17046898 (Version 2)
Quarter: 2019Q4

REPORT INFORMATION
  Report Type: Spontaneous
  Country: US (occurrence: US)
  Receive Date: 20191119
  Receipt Date: 20191204
  Transmission Date: 20200122
  Serious: Yes (Hospitalization)
  Sender: FDA-Public Use
  Company Number: US-TEVA-2019-US-1138707

PATIENT
  Age: 5 Decade
  Sex: Female

DRUGS (1)
  1. PRAMIPEXOLE. [Suspect]
     Active Substance: PRAMIPEXOLE
     Indication: RESTLESS LEGS SYNDROME
     Dosage: PRESCRIBED HIGH-DOSE PRAMIPEXOLE (2-3MG BID)
     Route: 065
     Dates: start: 2014

REACTIONS (4)
  - Suicide attempt [Recovered/Resolved]
  - Prescribed overdose [Unknown]
  - Depression [Recovered/Resolved]
  - Gambling disorder [Recovered/Resolved]

NARRATIVE: CASE EVENT DATE: 2014
